FAERS Safety Report 23917717 (Version 2)
Quarter: 2024Q2

REPORT INFORMATION
  Report Type: Spontaneous
  Country: SK (occurrence: SK)
  Receive Date: 20240530
  Receipt Date: 20240610
  Transmission Date: 20240716
  Serious: Yes (Other)
  Sender: FDA-Public Use
  Company Number: SK-JNJFOC-20240569155

PATIENT
  Age: 53 Year
  Sex: Female

DRUGS (3)
  1. SPRAVATO [Suspect]
     Active Substance: ESKETAMINE
     Indication: Depression
     Dosage: 8 ADMINISTRATIONS
     Dates: start: 20240301
  2. SPRAVATO [Suspect]
     Active Substance: ESKETAMINE
     Dosage: 9TH ADMINISTRATION
     Dates: start: 2024
  3. DULOXETINE [Concomitant]
     Active Substance: DULOXETINE
     Indication: Depression
     Dates: start: 202012

REACTIONS (3)
  - Blood pressure increased [Recovered/Resolved]
  - Dissociation [Recovered/Resolved]
  - Hyperacusis [Recovering/Resolving]

NARRATIVE: CASE EVENT DATE: 20240301
